FAERS Safety Report 12406711 (Version 1)
Quarter: 2016Q2

REPORT INFORMATION
  Report Type: Spontaneous
  Country: US (occurrence: US)
  Receive Date: 20160526
  Receipt Date: 20160526
  Transmission Date: 20160815
  Serious: No
  Sender: FDA-Public Use
  Company Number: US-JAZZ-JPI-P-016625

PATIENT
  Sex: Female
  Weight: 54.87 kg

DRUGS (15)
  1. XYREM [Suspect]
     Active Substance: SODIUM OXYBATE
     Indication: CATAPLEXY
     Dosage: DOSE ADJUSTMENTS
     Route: 048
  2. WELLBUTRIN XL [Concomitant]
     Active Substance: BUPROPION HYDROCHLORIDE
     Indication: SLEEP DISORDER
     Dosage: UNK
     Dates: start: 20150924
  3. OMEGA 3 FISH OIL [Concomitant]
     Active Substance: FISH OIL\OMEGA-3 FATTY ACIDS
     Indication: SUPPLEMENTATION THERAPY
     Dosage: UNK
     Dates: start: 20150925
  4. MAGNESIUM OXIDE. [Concomitant]
     Active Substance: MAGNESIUM OXIDE
     Indication: SUPPLEMENTATION THERAPY
     Dosage: UNK
     Dates: start: 20150925
  5. XYREM [Suspect]
     Active Substance: SODIUM OXYBATE
     Dosage: 3.25 G, BID
     Route: 048
  6. MULTIVITAMIN [Concomitant]
     Active Substance: VITAMINS
     Indication: SUPPLEMENTATION THERAPY
     Dosage: UNK
  7. PROBIOTIC [Concomitant]
     Active Substance: PROBIOTICS NOS
     Indication: SUPPLEMENTATION THERAPY
     Dosage: UNK
     Dates: start: 20150925
  8. ADDERALL [Concomitant]
     Active Substance: AMPHETAMINE ASPARTATE\AMPHETAMINE SULFATE\DEXTROAMPHETAMINE SACCHARATE\DEXTROAMPHETAMINE SULFATE
     Indication: SLEEP DISORDER
     Dosage: UNK
     Dates: start: 20150924
  9. MISOPROSTOL. [Concomitant]
     Active Substance: MISOPROSTOL
     Indication: ILL-DEFINED DISORDER
     Dosage: UNK
     Dates: start: 20150924
  10. CALCIUM CITRATE [Concomitant]
     Active Substance: CALCIUM CITRATE
     Indication: SUPPLEMENTATION THERAPY
     Dosage: UNK
     Dates: start: 20150925
  11. PONSTEL [Concomitant]
     Active Substance: MEFENAMIC ACID
     Indication: DYSMENORRHOEA
     Dosage: UNK
     Dates: start: 20150924
  12. XYREM [Suspect]
     Active Substance: SODIUM OXYBATE
     Indication: NARCOLEPSY
     Dosage: 2.25 G, BID
     Route: 048
     Dates: start: 201007, end: 201008
  13. NUVIGIL [Concomitant]
     Active Substance: ARMODAFINIL
     Indication: SLEEP DISORDER
     Dosage: UNK
     Dates: start: 20150924
  14. IRON [Concomitant]
     Active Substance: IRON
     Indication: SUPPLEMENTATION THERAPY
     Dosage: UNK
  15. LACTOFERRIN [Concomitant]
     Active Substance: LACTOFERRIN
     Indication: SUPPLEMENTATION THERAPY
     Dosage: UNK
     Dates: start: 20150925

REACTIONS (2)
  - Asthma [Unknown]
  - Acne [Not Recovered/Not Resolved]

NARRATIVE: CASE EVENT DATE: 2011
